FAERS Safety Report 9401500 (Version 2)
Quarter: 2013Q3

REPORT INFORMATION
  Report Type: Spontaneous
  Country: US (occurrence: US)
  Receive Date: 20130716
  Receipt Date: 20130813
  Transmission Date: 20140515
  Serious: Yes (Hospitalization, Other)
  Sender: FDA-Public Use
  Company Number: US-AMGEN-USASP2013048273

PATIENT
  Age: 63 Year
  Sex: Female

DRUGS (3)
  1. ENBREL [Suspect]
     Indication: ANKYLOSING SPONDYLITIS
     Dosage: 50 MG, QWK
     Route: 065
     Dates: start: 20061001
  2. ENBREL [Suspect]
     Dosage: UNK
     Route: 065
  3. REMICADE [Suspect]
     Indication: UVEITIS
     Dosage: UNK
     Route: 065

REACTIONS (11)
  - Urticaria [Recovered/Resolved]
  - Swelling [Recovered/Resolved]
  - Dyspnoea [Recovered/Resolved]
  - Retinal tear [Not Recovered/Not Resolved]
  - Angioedema [Recovered/Resolved]
  - Uveitis [Not Recovered/Not Resolved]
  - Chest pain [Recovered/Resolved]
  - Arthralgia [Recovered/Resolved]
  - Gait disturbance [Recovered/Resolved]
  - Injection site bruising [Not Recovered/Not Resolved]
  - Extra dose administered [Recovered/Resolved]
